FAERS Safety Report 17870238 (Version 1)
Quarter: 2020Q2

REPORT INFORMATION
  Report Type: Spontaneous
  Country: CA (occurrence: CA)
  Receive Date: 20200608
  Receipt Date: 20200608
  Transmission Date: 20200714
  Serious: Yes (Hospitalization, Other)
  Sender: FDA-Public Use
  Company Number: CA-ACCORD-184409

PATIENT
  Age: 75 Year
  Sex: Male

DRUGS (11)
  1. TACROLIMUS. [Suspect]
     Active Substance: TACROLIMUS
     Dosage: 1 EVERY 1 DAYS
  2. ARANESP [Concomitant]
     Active Substance: DARBEPOETIN ALFA
     Dosage: INTRAVENOUS SOLUTION
  3. FLUOROURACIL. [Concomitant]
     Active Substance: FLUOROURACIL
     Dosage: NOT SPECIFIED
  4. PANTOPRAZOLE [Concomitant]
     Active Substance: PANTOPRAZOLE
     Dosage: NOT SPECIFIED
  5. PRAVASTATIN. [Concomitant]
     Active Substance: PRAVASTATIN
  6. HUMALOG MIX75/25 [Concomitant]
     Active Substance: INSULIN LISPRO
     Dosage: SUSPENSION SUBCUTANEOUS
  7. ONDANSETRON [Concomitant]
     Active Substance: ONDANSETRON
     Dosage: NOT SPECIFIED
  8. ASA [Concomitant]
     Active Substance: ASPIRIN
     Dosage: NOT SPECIFIED
  9. LOPERAMIDE [Concomitant]
     Active Substance: LOPERAMIDE
  10. CALCIUM CARBONATE. [Concomitant]
     Active Substance: CALCIUM CARBONATE
     Dosage: NOT SPECIFIED
  11. HYDROXYZINE [Concomitant]
     Active Substance: HYDROXYZINE HYDROCHLORIDE
     Dosage: NOT SPECIFIED

REACTIONS (6)
  - Cholecystitis [Not Recovered/Not Resolved]
  - Hypotension [Not Recovered/Not Resolved]
  - Blood alkaline phosphatase increased [Not Recovered/Not Resolved]
  - Sepsis [Not Recovered/Not Resolved]
  - Hyperbilirubinaemia [Not Recovered/Not Resolved]
  - Chronic hepatic failure [Not Recovered/Not Resolved]
